APPROVED DRUG PRODUCT: LEVALBUTEROL HYDROCHLORIDE
Active Ingredient: LEVALBUTEROL HYDROCHLORIDE
Strength: EQ 0.021% BASE
Dosage Form/Route: SOLUTION;INHALATION
Application: A077756 | Product #001 | TE Code: AN
Applicant: IMPAX LABORATORIES INC
Approved: Apr 9, 2008 | RLD: No | RS: No | Type: RX